FAERS Safety Report 13220700 (Version 2)
Quarter: 2017Q1

REPORT INFORMATION
  Report Type: Spontaneous
  Country: JP (occurrence: JP)
  Receive Date: 20170211
  Receipt Date: 20170307
  Transmission Date: 20170428
  Serious: Yes (Other)
  Sender: FDA-Public Use
  Company Number: JP-AMGEN-JPNSP2017022417

PATIENT
  Age: 72 Year
  Sex: Male

DRUGS (11)
  1. G-LASTA [Suspect]
     Active Substance: PEGFILGRASTIM
     Indication: PRODUCT USED FOR UNKNOWN INDICATION
     Dosage: UNK
     Route: 058
  2. MEROPENEM. [Concomitant]
     Active Substance: MEROPENEM
     Dosage: UNK
     Route: 041
  3. FILGRASTIM RECOMBINANT [Concomitant]
     Dosage: UNK
     Route: 065
  4. CISPLATIN. [Suspect]
     Active Substance: CISPLATIN
     Dosage: UNK
     Route: 041
  5. LEVOFLOXACIN HEMIHYDRATE [Concomitant]
     Active Substance: LEVOFLOXACIN
     Indication: INFECTION PROPHYLAXIS
     Dosage: UNK
     Route: 065
  6. VANCOMYCIN HYDROCHLORIDE. [Concomitant]
     Active Substance: VANCOMYCIN HYDROCHLORIDE
     Dosage: UNK
     Route: 065
  7. 5-FU                               /00098801/ [Suspect]
     Active Substance: FLUOROURACIL
     Indication: PHARYNGEAL CANCER
     Dosage: 750 MG/M2, UNK
     Route: 041
  8. 5-FU                               /00098801/ [Suspect]
     Active Substance: FLUOROURACIL
     Dosage: UNK
     Route: 041
  9. DOCETAXEL. [Suspect]
     Active Substance: DOCETAXEL
     Dosage: UNK
     Route: 041
  10. DOCETAXEL. [Suspect]
     Active Substance: DOCETAXEL
     Indication: PHARYNGEAL CANCER
     Dosage: 60 MG/M2, UNK
     Route: 041
  11. CISPLATIN. [Suspect]
     Active Substance: CISPLATIN
     Indication: PHARYNGEAL CANCER
     Dosage: 60 MG/M2, UNK
     Route: 041

REACTIONS (3)
  - Febrile neutropenia [Recovered/Resolved]
  - Pneumonia aspiration [Unknown]
  - Neutrophil count decreased [Unknown]
